FAERS Safety Report 9683598 (Version 1)
Quarter: 2013Q4

REPORT INFORMATION
  Report Type: Spontaneous
  Country: CN (occurrence: CN)
  Receive Date: 20131112
  Receipt Date: 20131112
  Transmission Date: 20140711
  Serious: Yes (Other)
  Sender: FDA-Public Use
  Company Number: CN-ASTRAZENECA-2013SE80838

PATIENT
  Age: 42 Year
  Sex: Female

DRUGS (4)
  1. QUETIAPINE FUMARATE [Suspect]
     Route: 048
  2. BETALOC [Suspect]
     Indication: MYOCARDIAL ISCHAEMIA
     Route: 048
  3. ARIPIPRAZOLE [Concomitant]
  4. SHEXIANGBAOXIN [Concomitant]

REACTIONS (3)
  - Myocardial ischaemia [Unknown]
  - Epistaxis [Unknown]
  - Thrombocytopenia [Unknown]
